FAERS Safety Report 11126621 (Version 1)
Quarter: 2015Q2

REPORT INFORMATION
  Report Type: Spontaneous
  Country: FR (occurrence: FR)
  Receive Date: 20150520
  Receipt Date: 20150520
  Transmission Date: 20150821
  Serious: Yes (Hospitalization, Other)
  Sender: FDA-Public Use
  Company Number: FR-PFIZER INC-2015162806

PATIENT
  Age: 24 Year
  Sex: Male
  Weight: 72 kg

DRUGS (4)
  1. ZITHROMAX [Suspect]
     Active Substance: AZITHROMYCIN DIHYDRATE
     Indication: URINARY TRACT INFECTION
     Dosage: 250 MG, 1X/DAY
     Route: 048
     Dates: start: 20150306, end: 20150327
  2. ZITHROMAX [Suspect]
     Active Substance: AZITHROMYCIN DIHYDRATE
     Indication: FUNGAL SKIN INFECTION
  3. GRISEFULINE [Suspect]
     Active Substance: GRISEOFULVIN
     Indication: URINARY TRACT INFECTION
     Dosage: 500 MG, 1X/DAY
     Route: 048
     Dates: start: 20150306, end: 20150327
  4. GRISEFULINE [Suspect]
     Active Substance: GRISEOFULVIN
     Indication: FUNGAL SKIN INFECTION

REACTIONS (2)
  - Immune thrombocytopenic purpura [Recovered/Resolved]
  - Melaena [None]

NARRATIVE: CASE EVENT DATE: 20150327
